FAERS Safety Report 7182416-6 (Version None)
Quarter: 2010Q4

REPORT INFORMATION
  Report Type: 
  Country: None (occurrence: None)
  Receive Date: 20101221
  Receipt Date: 20100512
  Transmission Date: 20110411
  Serious: No
  Sender: FDA-Public Use
  Company Number: US-AMGEN-KDL411952

PATIENT

DRUGS (13)
  1. ENBREL [Suspect]
     Indication: ANKYLOSING SPONDYLITIS
     Dosage: UNK UNK, UNK
     Dates: start: 20030101, end: 20050101
  2. COLOXYL WITH SENNA [Concomitant]
  3. PAROXETINE HYDROCHLORIDE [Concomitant]
  4. CLONAZEPAM [Concomitant]
     Dosage: .5 MG, BID
  5. GABAPENTIN [Concomitant]
     Dosage: 600 MG, QID
  6. METHOCARBAMOL [Concomitant]
     Dosage: 750 MG, QID
  7. OMEGA-3 MARINE TRIGLYCERIDES [Concomitant]
     Dosage: 1 MG, QID
  8. OXYCODONE HYDROCHLORIDE [Concomitant]
     Dosage: 30 MG, PRN
  9. CYANOCOBALAMIN [Concomitant]
     Dosage: 1 MG, Q2WK
  10. MULTI-VITAMINS [Concomitant]
     Dosage: UNK UNK, QD
  11. NAPROXEN SODIUM [Concomitant]
     Dosage: 500 MG, BID
  12. SULFASALAZINE [Concomitant]
     Dosage: 1500 MG, BID
  13. OXYBUTYNIN HYDROCHLORIDE [Concomitant]
     Dosage: 40 MG, TID

REACTIONS (1)
  - DRUG INEFFECTIVE [None]
